FAERS Safety Report 9262581 (Version 1)
Quarter: 2013Q2

REPORT INFORMATION
  Report Type: Spontaneous
  Country: US (occurrence: US)
  Receive Date: 20130430
  Receipt Date: 20130430
  Transmission Date: 20140414
  Serious: Yes (Hospitalization)
  Sender: FDA-Public Use
  Company Number: US-BAYER-2013-052079

PATIENT
  Age: 20 Year
  Sex: Female
  Weight: 97.51 kg

DRUGS (9)
  1. YASMIN [Suspect]
  2. OCELLA [Suspect]
  3. HYDROCODONE W/APAP [Concomitant]
     Dosage: 7.5 / 500
     Route: 048
  4. PAROXETINE [Concomitant]
     Dosage: 20 MG, UNK
     Route: 048
  5. NORFLEX [Concomitant]
     Dosage: UNK
     Route: 048
     Dates: start: 20090826
  6. FLEXERIL [Concomitant]
     Dosage: UNK
     Route: 048
     Dates: start: 20090826
  7. ULTRAM [Concomitant]
     Dosage: UNK
     Route: 048
     Dates: start: 20090826
  8. DILAUDID [Concomitant]
  9. COMPAZINE [Concomitant]

REACTIONS (1)
  - Deep vein thrombosis [Not Recovered/Not Resolved]
